FAERS Safety Report 10010162 (Version 2)
Quarter: 2014Q1

REPORT INFORMATION
  Report Type: Spontaneous
  Country: US (occurrence: US)
  Receive Date: 20140313
  Receipt Date: 20140331
  Transmission Date: 20141002
  Serious: No
  Sender: FDA-Public Use
  Company Number: US-RB-064448-14

PATIENT
  Age: 33 Year
  Sex: Female

DRUGS (7)
  1. SUBOXONE FILM [Suspect]
     Indication: DRUG DEPENDENCE
     Dosage: SUBOXONE FILM
     Route: 060
     Dates: start: 20130415
  2. ALCOHOL [Suspect]
     Indication: PRODUCT USED FOR UNKNOWN INDICATION
     Dosage: DOSING DETAILS UNKNOWN
     Route: 048
     Dates: end: 2014
  3. NICOTINE [Concomitant]
     Indication: PRODUCT USED FOR UNKNOWN INDICATION
     Dosage: HALF A PACK DAILY
     Route: 055
  4. PRENATAL VITAMINS [Concomitant]
     Indication: NUTRITIONAL SUPPLEMENTATION
     Dosage: 1 TABLET DAILY
     Route: 065
     Dates: start: 201401
  5. ZOLOFT [Concomitant]
     Indication: DEPRESSION
     Route: 065
  6. EFFEXOR [Concomitant]
     Indication: DEPRESSION
     Route: 065
  7. XANAX [Concomitant]
     Indication: ANXIETY
     Route: 065

REACTIONS (3)
  - Maternal exposure during pregnancy [Not Recovered/Not Resolved]
  - Alcohol abuse [Recovered/Resolved]
  - Intentional underdose [Unknown]
